FAERS Safety Report 9855245 (Version 3)
Quarter: 2016Q3

REPORT INFORMATION
  Report Type: Spontaneous
  Country: US (occurrence: US)
  Receive Date: 20140130
  Receipt Date: 20160718
  Transmission Date: 20161109
  Serious: Yes (Life-Threatening, Hospitalization)
  Sender: FDA-Public Use
  Company Number: US-BAYER-2014-014247

PATIENT
  Sex: Female

DRUGS (6)
  1. SOMA [Concomitant]
     Active Substance: CARISOPRODOL
     Dosage: 350 MG, AT BEDTIME AS NEEDED
     Route: 048
  2. ALBUTEROL. [Concomitant]
     Active Substance: ALBUTEROL
     Dosage: AS NEEDED
  3. IMITREX [Concomitant]
     Active Substance: SUMATRIPTAN SUCCINATE
  4. TOPAMAX [Concomitant]
     Active Substance: TOPIRAMATE
     Dosage: 50 MG, DAILY, AS NEEDED
     Route: 048
  5. MIRENA [Suspect]
     Active Substance: LEVONORGESTREL
     Dosage: 20 MCG/DL, CONT
     Route: 015
     Dates: start: 20070108
  6. ACETAMINOPHEN\HYDROCODONE BITARTRATE [Concomitant]
     Active Substance: ACETAMINOPHEN\HYDROCODONE BITARTRATE
     Dosage: 10/325 MG 3 TIMES DAILY AS NEEDED
     Route: 048

REACTIONS (8)
  - Uterine perforation [None]
  - Anxiety [None]
  - Abdominal pain lower [None]
  - General physical health deterioration [None]
  - Pain [None]
  - Emotional distress [None]
  - Anhedonia [None]
  - Injury [None]
